FAERS Safety Report 9013573 (Version 1)
Quarter: 2013Q1

REPORT INFORMATION
  Report Type: Spontaneous
  Country: US (occurrence: None)
  Receive Date: 20130107
  Receipt Date: 20130107
  Transmission Date: 20140127
  Serious: Yes (Hospitalization)
  Sender: FDA-Public Use
  Company Number: None

PATIENT
  Sex: Male
  Weight: 47.17 kg

DRUGS (2)
  1. CARBOPLATIN [Suspect]
     Dates: end: 20121130
  2. DOCETAXEL (TAXOTERE) [Suspect]
     Dates: end: 20121130

REACTIONS (7)
  - Hyponatraemia [None]
  - Platelet count decreased [None]
  - Refusal of treatment by patient [None]
  - Anaemia [None]
  - Pneumonia [None]
  - Laryngeal squamous cell carcinoma [None]
  - Malignant neoplasm progression [None]
